FAERS Safety Report 13914901 (Version 1)
Quarter: 2017Q3

REPORT INFORMATION
  Report Type: Spontaneous
  Country: US (occurrence: US)
  Receive Date: 20170828
  Receipt Date: 20170828
  Transmission Date: 20171127
  Serious: No
  Sender: FDA-Public Use
  Company Number: None

PATIENT
  Age: 64 Year
  Sex: Female
  Weight: 46.35 kg

DRUGS (25)
  1. LOMOTIL [Concomitant]
     Active Substance: ATROPINE SULFATE\DIPHENOXYLATE HYDROCHLORIDE
  2. PANTOPRAZOLE [Concomitant]
     Active Substance: PANTOPRAZOLE
  3. LYRICA [Concomitant]
     Active Substance: PREGABALIN
  4. TOPIRAMATE. [Concomitant]
     Active Substance: TOPIRAMATE
  5. OXYCODONE ACETAMONOPHEN [Concomitant]
  6. ALPRAZOLAM. [Concomitant]
     Active Substance: ALPRAZOLAM
  7. ALEGRRA [Concomitant]
  8. TYLENOL [Concomitant]
     Active Substance: ACETAMINOPHEN
  9. MELATONIN [Concomitant]
     Active Substance: MELATONIN
  10. ADVAIR DISKUS [Concomitant]
     Active Substance: FLUTICASONE PROPIONATE\SALMETEROL XINAFOATE
  11. PREDNISONE. [Concomitant]
     Active Substance: PREDNISONE
  12. RANITIDINE. [Concomitant]
     Active Substance: RANITIDINE
  13. VITAMIN D [Concomitant]
     Active Substance: CHOLECALCIFEROL
  14. BIOTIN [Concomitant]
     Active Substance: BIOTIN
  15. BACLOFEN 10 MG [Suspect]
     Active Substance: BACLOFEN
     Indication: NEURALGIA
     Dosage: ?          QUANTITY:90 TABLET(S);?
     Route: 048
     Dates: start: 20170818, end: 20170819
  16. TUMS [Concomitant]
     Active Substance: CALCIUM CARBONATE
  17. BURPROPION SR [Concomitant]
  18. LEVOTHYROXINE. [Concomitant]
     Active Substance: LEVOTHYROXINE
  19. BUTALBITAL/ACETAMINOPHEN/CAFF [Concomitant]
  20. FIBER SUPPLEMENT + PROBIOTIC [Concomitant]
  21. B-1 [Concomitant]
  22. MULTI VITAMIN [Concomitant]
     Active Substance: VITAMINS
  23. CALCIUM/D-3 [Concomitant]
  24. FENOFIBRATE. [Concomitant]
     Active Substance: FENOFIBRATE
  25. PROAIR HFA INHAILER [Concomitant]

REACTIONS (9)
  - Confusional state [None]
  - Loss of consciousness [None]
  - Abdominal discomfort [None]
  - Paraesthesia [None]
  - Blood pressure increased [None]
  - Agitation [None]
  - Feeling abnormal [None]
  - Dizziness [None]
  - Dyspnoea [None]

NARRATIVE: CASE EVENT DATE: 20170820
